FAERS Safety Report 21746613 (Version 1)
Quarter: 2022Q4

REPORT INFORMATION
  Report Type: Spontaneous
  Country: US (occurrence: None)
  Receive Date: 20221216
  Receipt Date: 20221216
  Transmission Date: 20230113
  Serious: Yes (Hospitalization)
  Sender: FDA-Public Use
  Company Number: None

PATIENT
  Age: 70 Year
  Sex: Female

DRUGS (22)
  1. AMBRISENTAN [Suspect]
     Active Substance: AMBRISENTAN
     Indication: Pulmonary arterial hypertension
     Dosage: FREQUENCY : DAILY;?
     Route: 048
     Dates: start: 20140121
  2. TYLENOL [Suspect]
     Active Substance: ACETAMINOPHEN
  3. TADALAFIL [Concomitant]
     Active Substance: TADALAFIL
  4. LORAZEPAM [Concomitant]
     Active Substance: LORAZEPAM
  5. PERCOCET [Concomitant]
     Active Substance: ACETAMINOPHEN\OXYCODONE HYDROCHLORIDE
  6. ATORVASTATIN [Concomitant]
     Active Substance: ATORVASTATIN
  7. FLONASE [Concomitant]
     Active Substance: FLUTICASONE PROPIONATE
  8. ARICEPT [Concomitant]
     Active Substance: DONEPEZIL HYDROCHLORIDE
  9. LEVOTHYROXINE [Concomitant]
     Active Substance: LEVOTHYROXINE
  10. PANTOPRAZOLE [Concomitant]
     Active Substance: PANTOPRAZOLE
  11. AMLODIPINE [Concomitant]
     Active Substance: AMLODIPINE BESYLATE
  12. ATENOLOL [Concomitant]
     Active Substance: ATENOLOL
  13. GABAPENTIN [Concomitant]
     Active Substance: GABAPENTIN
  14. MONTELUKAST [Concomitant]
     Active Substance: MONTELUKAST SODIUM
  15. FOLIC ACID [Concomitant]
     Active Substance: FOLIC ACID
  16. BUSPAR [Concomitant]
     Active Substance: BUSPIRONE HYDROCHLORIDE
  17. MOBIC [Concomitant]
     Active Substance: MELOXICAM
  18. DULOXETINE [Concomitant]
     Active Substance: DULOXETINE
  19. VITAMINS [Concomitant]
     Active Substance: VITAMINS
  20. BIOTIN [Concomitant]
     Active Substance: BIOTIN
  21. ASPIRIN [Concomitant]
     Active Substance: ASPIRIN
  22. FISH OIL [Concomitant]
     Active Substance: FISH OIL

REACTIONS (3)
  - Intentional overdose [None]
  - Hypertransaminasaemia [None]
  - Alcohol abuse [None]

NARRATIVE: CASE EVENT DATE: 20221201
